FAERS Safety Report 21539592 (Version 2)
Quarter: 2023Q2

REPORT INFORMATION
  Report Type: Report from Study
  Country: US (occurrence: US)
  Receive Date: 20221102
  Receipt Date: 20230506
  Transmission Date: 20230722
  Serious: Yes (Death)
  Sender: FDA-Public Use
  Company Number: US-ABBVIE-4184865

PATIENT
  Age: 74 Year

DRUGS (1)
  1. HUMIRA [Suspect]
     Active Substance: ADALIMUMAB
     Indication: Rheumatoid arthritis
     Route: 058

REACTIONS (1)
  - Death [Fatal]

NARRATIVE: CASE EVENT DATE: 20221028
